FAERS Safety Report 5562380-3 (Version None)
Quarter: 2007Q4

REPORT INFORMATION
  Report Type: 
  Country: None (occurrence: None)
  Receive Date: 20071215
  Receipt Date: 20070829
  Transmission Date: 20080405
  Serious: No
  Sender: FDA-Public Use
  Company Number: US-AMGEN-US241056

PATIENT
  Sex: Male

DRUGS (5)
  1. ARANESP [Suspect]
     Indication: RENAL FAILURE CHRONIC
     Route: 058
     Dates: start: 20060101
  2. ARANESP [Suspect]
     Route: 058
  3. ARANESP [Suspect]
     Route: 058
  4. ARANESP [Suspect]
     Route: 058
  5. INSULIN [Concomitant]
     Route: 065

REACTIONS (1)
  - BLOOD IRON DECREASED [None]
